FAERS Safety Report 7382922-5 (Version None)
Quarter: 2011Q1

REPORT INFORMATION
  Report Type: 
  Country: None (occurrence: None)
  Receive Date: 20110330
  Receipt Date: 20100116
  Transmission Date: 20110831
  Serious: Yes (Death, Hospitalization, Other)
  Sender: FDA-Public Use
  Company Number: US-BAYER-201011411NA

PATIENT
  Sex: Female

DRUGS (7)
  1. ANTIHYPERTENSIVES [Concomitant]
     Indication: HYPERTENSION
     Dosage: UNK
     Dates: start: 19970101, end: 20070101
  2. NITROGLYCERIN [Concomitant]
     Indication: HEART RATE INCREASED
  3. LASIX [Concomitant]
     Indication: FLUID RETENTION
     Dosage: UNK
     Dates: start: 20040101, end: 20070101
  4. VISIPAQUE [Concomitant]
     Indication: COMPUTERISED TOMOGRAM
     Dosage: UNK
     Dates: start: 20071128
  5. TRASYLOL [Suspect]
     Indication: CORONARY ARTERY BYPASS
     Dosage: UNK
     Dates: start: 20061201
  6. TRASYLOL [Suspect]
     Indication: HEART VALVE REPLACEMENT
  7. NITROGLYCERIN [Concomitant]
     Indication: CHEST PAIN
     Dosage: UNK
     Dates: start: 20050101

REACTIONS (14)
  - RENAL FAILURE [None]
  - UNEVALUABLE EVENT [None]
  - CARDIAC DISORDER [None]
  - ORGAN FAILURE [None]
  - ANXIETY [None]
  - FEAR [None]
  - DEPRESSION [None]
  - CEREBROVASCULAR ACCIDENT [None]
  - RENAL INJURY [None]
  - PAIN [None]
  - ANHEDONIA [None]
  - INJURY [None]
  - DEATH [None]
  - RENAL IMPAIRMENT [None]
